FAERS Safety Report 13447211 (Version 8)
Quarter: 2018Q2

REPORT INFORMATION
  Report Type: Report from Study
  Country: DE (occurrence: DE)
  Receive Date: 20170417
  Receipt Date: 20180515
  Transmission Date: 20180711
  Serious: Yes (Death, Hospitalization)
  Sender: FDA-Public Use
  Company Number: DE-ROCHE-1906836

PATIENT
  Age: 48 Year
  Sex: Female
  Weight: 101 kg

DRUGS (26)
  1. SODIUM CHLORIDE. [Concomitant]
     Active Substance: SODIUM CHLORIDE
     Indication: HYPERSENSITIVITY
     Route: 065
     Dates: start: 20170301, end: 20170301
  2. L-THYROXIN [Concomitant]
     Active Substance: LEVOTHYROXINE SODIUM
     Indication: AUTOIMMUNE THYROIDITIS
     Route: 065
     Dates: start: 20170309
  3. PANTOZOL [Concomitant]
     Active Substance: PANTOPRAZOLE SODIUM
     Route: 065
     Dates: start: 20170314, end: 20170323
  4. SODIUM CHLORIDE. [Concomitant]
     Active Substance: SODIUM CHLORIDE
     Route: 065
     Dates: start: 20170313, end: 20170322
  5. FENISTIL (GERMANY) [Concomitant]
     Indication: RASH MACULO-PAPULAR
     Route: 065
     Dates: start: 20170301, end: 20170301
  6. PREDNICARBATE. [Concomitant]
     Active Substance: PREDNICARBATE
     Indication: SKIN DISORDER
     Route: 065
     Dates: start: 20170215
  7. PREDNICARBATE. [Concomitant]
     Active Substance: PREDNICARBATE
     Indication: RASH MACULO-PAPULAR
  8. DORMICUM [Concomitant]
     Route: 065
     Dates: start: 20170413
  9. NATRIUMCHLORID [Concomitant]
     Active Substance: SODIUM CHLORIDE
     Route: 065
     Dates: start: 20170313, end: 20170322
  10. BISOPROLOL [Concomitant]
     Active Substance: BISOPROLOL
     Indication: HYPERTENSION
  11. POLIHEXANIDE [Concomitant]
     Active Substance: POLIHEXANIDE
     Indication: PRURIGO
     Dosage: POLIHEXANID SALV
     Route: 065
     Dates: start: 20170314
  12. DORMICUM [Concomitant]
     Indication: SEDATION
     Route: 065
     Dates: start: 20170314, end: 20170328
  13. DEXAMETHASON [Concomitant]
     Active Substance: DEXAMETHASONE
     Route: 065
     Dates: start: 20170315
  14. PANTOZOL [Concomitant]
     Active Substance: PANTOPRAZOLE SODIUM
     Indication: PROPHYLAXIS
     Route: 065
     Dates: start: 20170410
  15. HALDOL [Concomitant]
     Active Substance: HALOPERIDOL
     Indication: PAIN
     Route: 065
     Dates: start: 20170411, end: 20170413
  16. NAB-PACLITAXEL [Suspect]
     Active Substance: PACLITAXEL
     Indication: BREAST CANCER METASTATIC
     Dosage: THE MOST RECENT DOSE OF PACLITAXEL ALBUMIN WAS ADMINISTERED ON 08/MAR/2017.?ADMINISTERED ON DAYS 1,
     Route: 042
     Dates: start: 20170104
  17. RANITIDIN [Concomitant]
     Active Substance: RANITIDINE HYDROCHLORIDE
     Indication: HYPERSENSITIVITY
     Route: 065
     Dates: start: 20170301, end: 20170301
  18. PANTOZOL [Concomitant]
     Active Substance: PANTOPRAZOLE SODIUM
     Indication: DYSPEPSIA
     Route: 065
     Dates: start: 20170313, end: 20170328
  19. DULCOLAX (BISACODYL) [Concomitant]
     Active Substance: BISACODYL
     Indication: CONSTIPATION
     Route: 065
     Dates: start: 20170317, end: 20170328
  20. AUGMENTAN [Concomitant]
     Active Substance: AMOXICILLIN\CLAVULANATE POTASSIUM
     Indication: ABSCESS JAW
     Route: 065
     Dates: start: 20170227, end: 20170306
  21. FENISTIL (GERMANY) [Concomitant]
     Indication: SKIN DISORDER
     Route: 065
     Dates: start: 20170215, end: 20170217
  22. FENISTIL (GERMANY) [Concomitant]
     Indication: HYPERSENSITIVITY
     Route: 065
     Dates: start: 20170215, end: 20170218
  23. BISO LICH [Concomitant]
     Active Substance: BISOPROLOL
  24. CLINDAMYCIN. [Concomitant]
     Active Substance: CLINDAMYCIN
     Indication: TOOTH EXTRACTION
     Route: 065
     Dates: start: 20170313, end: 20170321
  25. HALDOL [Concomitant]
     Active Substance: HALOPERIDOL
     Indication: SEDATION
  26. ATEZOLIZUMAB. [Suspect]
     Active Substance: ATEZOLIZUMAB
     Indication: BREAST CANCER METASTATIC
     Dosage: THE MOST RECENT DOSE OF BLINDED ATEZOLIZUMAB WAS ADMINISTERED ON 01/MAR/2017.?ADMINISTERED ON DAYS 1
     Route: 042
     Dates: start: 20170104

REACTIONS (3)
  - Mucosal inflammation [Not Recovered/Not Resolved]
  - Nausea [Not Recovered/Not Resolved]
  - Fatigue [Not Recovered/Not Resolved]

NARRATIVE: CASE EVENT DATE: 20170313
